FAERS Safety Report 4811828-8 (Version None)
Quarter: 2005Q4

REPORT INFORMATION
  Report Type: 
  Country: None (occurrence: None)
  Receive Date: 20051027
  Receipt Date: 20051027
  Transmission Date: 20060501
  Serious: Yes (Death, Other)
  Sender: FDA-Public Use
  Company Number: None

PATIENT
  Sex: Female

DRUGS (11)
  1. XIGRIS [Suspect]
     Indication: SEPTIC SHOCK
     Dosage: 24 MCG/KG/HR   IV DRIP
     Route: 041
     Dates: start: 20050718, end: 20050720
  2. PANTOPRAZOLE [Concomitant]
  3. LORAZEPAM [Concomitant]
  4. PROPOFOL [Concomitant]
  5. VANCOMYCIN [Concomitant]
  6. HEPARIN [Concomitant]
  7. PHENYLEPHRINE [Concomitant]
  8. METHADONE [Concomitant]
  9. NICOTINE [Concomitant]
  10. FENTANYL [Concomitant]
  11. GENTAMICIN [Concomitant]

REACTIONS (4)
  - DRUG EXPOSURE DURING PREGNANCY [None]
  - INTRA-UTERINE DEATH [None]
  - PREMATURE SEPARATION OF PLACENTA [None]
  - VAGINAL HAEMORRHAGE [None]
